FAERS Safety Report 14151859 (Version 2)
Quarter: 2018Q1

REPORT INFORMATION
  Report Type: Report from Study
  Country: DE (occurrence: DE)
  Receive Date: 20171102
  Receipt Date: 20180226
  Transmission Date: 20180508
  Serious: Yes (Death, Other)
  Sender: FDA-Public Use
  Company Number: DE-BRISTOL-MYERS SQUIBB COMPANY-BMS-2017-095917

PATIENT
  Age: 86 Year
  Sex: Male

DRUGS (5)
  1. HYDROXYUREA. [Suspect]
     Active Substance: HYDROXYUREA
     Indication: PRODUCT USED FOR UNKNOWN INDICATION
     Dosage: 500 MG, 4 DAYS PER WEEK
     Route: 065
     Dates: start: 201508, end: 201604
  2. HYDROXYUREA. [Suspect]
     Active Substance: HYDROXYUREA
     Indication: PRODUCT USED FOR UNKNOWN INDICATION
     Dosage: 500 MG, 5 DAYS PER WEEK
     Route: 065
     Dates: start: 20150501, end: 20150521
  3. HYDROXYUREA. [Suspect]
     Active Substance: HYDROXYUREA
     Indication: PRODUCT USED FOR UNKNOWN INDICATION
     Dosage: 500 MG, 7 DAYS PER WEEK
     Route: 065
     Dates: start: 20150522, end: 201508
  4. HYDROXYUREA. [Suspect]
     Active Substance: HYDROXYUREA
     Indication: CHRONIC MYELOID LEUKAEMIA
     Dosage: 500 MG, 7 DAYS PER WEEK
     Route: 065
     Dates: start: 20150311, end: 20150423
  5. HYDROXYUREA. [Suspect]
     Active Substance: HYDROXYUREA
     Indication: PRODUCT USED FOR UNKNOWN INDICATION
     Dosage: 500 MG, 3 DAYS PER WEEK
     Route: 065
     Dates: start: 20150424, end: 20150430

REACTIONS (2)
  - Death [Fatal]
  - Nocturnal dyspnoea [Unknown]

NARRATIVE: CASE EVENT DATE: 20160225
